FAERS Safety Report 13935665 (Version 1)
Quarter: 2017Q3

REPORT INFORMATION
  Report Type: Spontaneous
  Country: GB (occurrence: GB)
  Receive Date: 20170902
  Receipt Date: 20170902
  Transmission Date: 20171127
  Serious: Yes (Disabling)
  Sender: FDA-Public Use
  Company Number: None

PATIENT
  Age: 63 Year
  Sex: Female
  Weight: 85 kg

DRUGS (3)
  1. NEURONTIN [Suspect]
     Active Substance: GABAPENTIN
     Indication: PAIN
     Dosage: ?          QUANTITY:1 CAPSULE(S);?
     Route: 048
  2. RAMPRIL [Concomitant]
     Active Substance: RAMIPRIL
  3. BISOPROPOL [Concomitant]

REACTIONS (10)
  - Nausea [None]
  - Tremor [None]
  - Anxiety [None]
  - Suicidal ideation [None]
  - Depression [None]
  - Ataxia [None]
  - Withdrawal syndrome [None]
  - Night sweats [None]
  - Urine odour abnormal [None]
  - Tachycardia [None]

NARRATIVE: CASE EVENT DATE: 20161201
